FAERS Safety Report 17156815 (Version 1)
Quarter: 2019Q4

REPORT INFORMATION
  Report Type: Spontaneous
  Country: US (occurrence: US)
  Receive Date: 20191216
  Receipt Date: 20191216
  Transmission Date: 20200122
  Serious: No
  Sender: FDA-Public Use
  Company Number: US-EMCURE PHARMACEUTICALS LTD-2019-EPL-0778

PATIENT

DRUGS (1)
  1. INDOMETHACIN. [Suspect]
     Active Substance: INDOMETHACIN

REACTIONS (1)
  - Drug hypersensitivity [Unknown]
